FAERS Safety Report 24615801 (Version 1)
Quarter: 2024Q4

REPORT INFORMATION
  Report Type: Spontaneous
  Country: CA (occurrence: CA)
  Receive Date: 20241113
  Receipt Date: 20241113
  Transmission Date: 20250115
  Serious: Yes (Other)
  Sender: COVIS PHARMA GMBH
  Company Number: CA-Covis Pharma Europe B.V.-2024COV01326

PATIENT
  Age: 43 Year
  Sex: Male

DRUGS (11)
  1. ALVESCO [Suspect]
     Active Substance: CICLESONIDE
     Route: 065
  2. ENTYVIO [Suspect]
     Active Substance: VEDOLIZUMAB
     Indication: Colitis ulcerative
     Route: 042
  3. ENTYVIO [Suspect]
     Active Substance: VEDOLIZUMAB
     Route: 042
  4. CANAGLIFLOZIN [Concomitant]
     Active Substance: CANAGLIFLOZIN
     Route: 048
  5. HYDROCHLOROTHIAZIDE [Concomitant]
     Active Substance: HYDROCHLOROTHIAZIDE
     Route: 048
  6. HYDROMORPHONE [Concomitant]
     Active Substance: HYDROMORPHONE
     Route: 048
  7. LOPERAMIDE [Concomitant]
     Active Substance: LOPERAMIDE
     Route: 048
  8. METHOTREXATE [Concomitant]
     Active Substance: METHOTREXATE
     Indication: Rheumatoid arthritis
  9. ALBUTEROL [Concomitant]
     Active Substance: ALBUTEROL
  10. SEMAGLUTIDE [Concomitant]
     Active Substance: SEMAGLUTIDE
     Route: 058
  11. TIZANIDINE [Concomitant]
     Active Substance: TIZANIDINE
     Route: 048

REACTIONS (10)
  - Arthralgia [Not Recovered/Not Resolved]
  - Colitis ulcerative [Not Recovered/Not Resolved]
  - Diarrhoea [Not Recovered/Not Resolved]
  - Drug level decreased [Not Recovered/Not Resolved]
  - Flatulence [Not Recovered/Not Resolved]
  - Hyperhidrosis [Not Recovered/Not Resolved]
  - Hypoaesthesia [Not Recovered/Not Resolved]
  - Lipoma [Not Recovered/Not Resolved]
  - Chest pain [Not Recovered/Not Resolved]
  - Off label use [Not Recovered/Not Resolved]
